FAERS Safety Report 17420648 (Version 2)
Quarter: 2020Q1

REPORT INFORMATION
  Report Type: Spontaneous
  Country: DE (occurrence: DE)
  Receive Date: 20200214
  Receipt Date: 20200228
  Transmission Date: 20200409
  Serious: Yes (Life-Threatening, Hospitalization, Other)
  Sender: FDA-Public Use
  Company Number: DE-ASTRAZENECA-2020SE20882

PATIENT
  Age: 2229 Week
  Sex: Female
  Weight: 50 kg

DRUGS (12)
  1. SALBUTAMOL [Concomitant]
     Active Substance: ALBUTEROL
     Dosage: AS REQUIRED
  2. CORTISONE [Concomitant]
     Active Substance: CORTISONE
  3. FASENRA [Suspect]
     Active Substance: BENRALIZUMAB
     Indication: ASTHMA
     Dosage: UNKNOWN
     Route: 058
     Dates: start: 20191004
  4. AZITHROMYCIN ANHYDROUS. [Concomitant]
     Active Substance: AZITHROMYCIN ANHYDROUS
  5. FOSTER [Concomitant]
     Active Substance: BECLOMETHASONE\FORMOTEROL
     Dosage: TWO TIMES A DAY
  6. BRONCHODILATIVE DRUGS [Concomitant]
  7. AMPICILLIN AND SULBACTAM [Concomitant]
     Active Substance: AMPICILLIN SODIUM\SULBACTAM SODIUM
  8. PREDNISOLONE. [Concomitant]
     Active Substance: PREDNISOLONE
     Dosage: 250.0MG UNKNOWN
     Route: 042
  9. INTERLEUKIN [Concomitant]
     Active Substance: INTERLEUKIN NOS
  10. TAVOR [Concomitant]
     Route: 042
  11. FASENRA [Suspect]
     Active Substance: BENRALIZUMAB
     Indication: ASTHMA
     Dosage: 30.0MG UNKNOWN
     Route: 058
  12. ADRENALINE [Concomitant]
     Active Substance: EPINEPHRINE

REACTIONS (15)
  - Drug hypersensitivity [Unknown]
  - General physical health deterioration [Recovered/Resolved]
  - Tachycardia [Recovered/Resolved]
  - Orthopnoea [Recovered/Resolved]
  - Radial pulse abnormal [Unknown]
  - Cyanosis [Recovered/Resolved]
  - Bronchial obstruction [Recovered/Resolved]
  - Hypertension [Recovered/Resolved]
  - Dyspnoea [Recovered/Resolved]
  - Stridor [Recovered/Resolved]
  - Oxygen saturation abnormal [Unknown]
  - Productive cough [Recovered/Resolved]
  - Asthma [Recovered/Resolved]
  - Respiratory acidosis [Unknown]
  - Pallor [Recovered/Resolved]

NARRATIVE: CASE EVENT DATE: 20191005
